FAERS Safety Report 15440201 (Version 1)
Quarter: 2018Q3

REPORT INFORMATION
  Report Type: Spontaneous
  Country: US (occurrence: US)
  Receive Date: 20180925
  Receipt Date: 20180925
  Transmission Date: 20181010
  Serious: Yes (Death)
  Sender: FDA-Public Use
  Company Number: None

PATIENT
  Age: 7 Year
  Sex: Male
  Weight: 30.7 kg

DRUGS (4)
  1. DAUNORUBICIN [Suspect]
     Active Substance: DAUNORUBICIN
     Dates: end: 20180913
  2. VINCRISTINE SULFATE. [Suspect]
     Active Substance: VINCRISTINE SULFATE
     Dates: end: 20180913
  3. ONCASPAR [Suspect]
     Active Substance: PEGASPARGASE
     Dates: end: 20180916
  4. DEXAMETHASONE. [Suspect]
     Active Substance: DEXAMETHASONE
     Dates: end: 20180919

REACTIONS (11)
  - Colitis [None]
  - Bladder dilatation [None]
  - Septic shock [None]
  - Abdominal distension [None]
  - Rectal haemorrhage [None]
  - Neutropenia [None]
  - Acute abdomen [None]
  - Thrombocytopenia [None]
  - Ascites [None]
  - Urinary retention [None]
  - Kidney enlargement [None]

NARRATIVE: CASE EVENT DATE: 20180919
